FAERS Safety Report 6291371-2 (Version None)
Quarter: 2009Q3

REPORT INFORMATION
  Report Type: 
  Country: None (occurrence: None)
  Receive Date: 20090730
  Receipt Date: 20090605
  Transmission Date: 20100115
  Serious: Yes (Death, Other)
  Sender: FDA-Public Use
  Company Number: US-PURDUE-USA-2009-0038815

PATIENT
  Sex: Male
  Weight: 68.027 kg

DRUGS (1)
  1. OXYCONTIN [Suspect]
     Indication: ANALGESIA
     Dosage: 60 MG, UNK
     Dates: start: 20000104, end: 20011214

REACTIONS (7)
  - COMPLETED SUICIDE [None]
  - DEPRESSION [None]
  - DRUG DEPENDENCE [None]
  - DRUG WITHDRAWAL SYNDROME [None]
  - GUN SHOT WOUND [None]
  - INSOMNIA [None]
  - PAIN [None]
